FAERS Safety Report 20213838 (Version 7)
Quarter: 2023Q4

REPORT INFORMATION
  Report Type: Report from Study
  Country: ES (occurrence: None)
  Receive Date: 20211221
  Receipt Date: 20231108
  Transmission Date: 20240109
  Serious: Yes (Hospitalization)
  Sender: FDA-Public Use
  Company Number: ES-ROCHE-2982882

PATIENT
  Age: 47 Year
  Sex: Female
  Weight: 59.8 kg

DRUGS (27)
  1. ATEZOLIZUMAB [Suspect]
     Active Substance: ATEZOLIZUMAB
     Indication: Pancreatic carcinoma metastatic
     Dosage: DATE OF MOST RECENT DOSE OF ATEZOLIZUMAB 840MG PRIOR TO AE : 10/DEC/2021, 11/MAR/2022, 26/AUG/2022
     Route: 042
     Dates: start: 20201126
  2. GEMCITABINE [Suspect]
     Active Substance: GEMCITABINE
     Indication: Pancreatic carcinoma metastatic
     Route: 042
     Dates: start: 20201126
  3. GEMCITABINE [Suspect]
     Active Substance: GEMCITABINE
     Dosage: DATE OF MOST RECENT DOSE OF GEMCITABINE (1590) MG PRIOR TO AE  26/AUG/2022
     Route: 042
  4. GEMCITABINE [Suspect]
     Active Substance: GEMCITABINE
     Dosage: DATE OF MOST RECENT DOSE OF GEMCITABINE 1000 MG PRIOR TO AE :10/DEC/2021, 11/MAR/2022
     Route: 042
  5. PACLITAXEL [Suspect]
     Active Substance: PACLITAXEL
     Indication: Pancreatic carcinoma metastatic
     Dosage: DATE OF MOST RECENT DOSE OF NAB-PACLITAXEL 10/DEC/2021, 11/MAR/2022, 26/AUG/2022
     Route: 042
     Dates: start: 20201126
  6. PACLITAXEL [Suspect]
     Active Substance: PACLITAXEL
     Dosage: DATE OF MOST RECENT DOSE OF NAB-PACLITAXEL 198.75 MG: 26/AUG/2022
     Route: 042
  7. PACLITAXEL [Suspect]
     Active Substance: PACLITAXEL
     Dosage: DATE OF MOST RECENT DOSE OF NAB-PACLITAXEL 125MG : 10/DEC/2021, 11/MAR/2022
     Route: 042
  8. TIRAGOLUMAB [Suspect]
     Active Substance: TIRAGOLUMAB
     Indication: Pancreatic carcinoma metastatic
     Dosage: DATE OF MOST RECENT DOSE OF TIRAGOLUMAB 420MG : 10/DEC/2021, 11/MAR/2022, 26/AUG/2022
     Route: 042
     Dates: start: 20201126
  9. HYDROCHLOROTHIAZIDE\TELMISARTAN [Concomitant]
     Active Substance: HYDROCHLOROTHIAZIDE\TELMISARTAN
     Indication: Hypertension
     Route: 048
     Dates: start: 2010
  10. OMEPRAZOLE [Concomitant]
     Active Substance: OMEPRAZOLE
     Route: 048
     Dates: start: 2019
  11. METFORMIN [Concomitant]
     Active Substance: METFORMIN HYDROCHLORIDE
     Indication: Pancreatic failure
     Route: 048
     Dates: start: 202008
  12. PANCRELIPASE [Concomitant]
     Active Substance: PANCRELIPASE
     Indication: Pancreatic failure
     Route: 048
     Dates: start: 202009
  13. DESOGESTREL [Concomitant]
     Active Substance: DESOGESTREL
     Indication: Ovarian cyst
     Dosage: GIVEN FOR PROPHYLAXIS IS NO ;ONGOING: YES
     Route: 048
     Dates: start: 2019
  14. FELODIPINE\METOPROLOL SUCCINATE [Concomitant]
     Active Substance: FELODIPINE\METOPROLOL SUCCINATE
     Indication: Hypertension
     Route: 048
     Dates: start: 2010
  15. ATORVASTATIN [Concomitant]
     Active Substance: ATORVASTATIN
     Indication: Dyslipidaemia
     Route: 048
     Dates: start: 2018
  16. ENOXAPARIN SODIUM [Concomitant]
     Active Substance: ENOXAPARIN SODIUM
     Route: 058
     Dates: start: 20201013
  17. ASPIRIN [Concomitant]
     Active Substance: ASPIRIN
     Route: 048
     Dates: start: 2010
  18. ACETAMINOPHEN [Concomitant]
     Active Substance: ACETAMINOPHEN
     Indication: Flank pain
     Route: 048
     Dates: start: 202008
  19. FERPLEX [Concomitant]
     Indication: Anaemia
     Route: 048
     Dates: start: 20210121
  20. MAGNOGENE [Concomitant]
     Indication: Hypomagnesaemia
     Route: 048
     Dates: start: 20210226
  21. POTASSIUM CHLORIDE [Concomitant]
     Active Substance: POTASSIUM CHLORIDE
     Indication: Hypokalaemia
     Route: 048
     Dates: start: 20201203
  22. DEXAMETHASONE [Concomitant]
     Active Substance: DEXAMETHASONE
     Route: 042
     Dates: start: 20211126, end: 20211126
  23. DEXAMETHASONE [Concomitant]
     Active Substance: DEXAMETHASONE
     Route: 042
     Dates: start: 20211203, end: 20211203
  24. DEXAMETHASONE [Concomitant]
     Active Substance: DEXAMETHASONE
     Route: 042
     Dates: start: 20211210, end: 20211210
  25. GRANISETRON [Concomitant]
     Active Substance: GRANISETRON
     Route: 042
     Dates: start: 20211126, end: 20211126
  26. GRANISETRON [Concomitant]
     Active Substance: GRANISETRON
     Route: 042
     Dates: start: 20211203, end: 20211203
  27. GRANISETRON [Concomitant]
     Active Substance: GRANISETRON
     Route: 042
     Dates: start: 20211210, end: 20211210

REACTIONS (2)
  - Sweat gland infection [Recovered/Resolved]
  - Hidradenitis [Recovered/Resolved]

NARRATIVE: CASE EVENT DATE: 20211213
